FAERS Safety Report 6770609-9 (Version None)
Quarter: 2010Q2

REPORT INFORMATION
  Report Type: 
  Country: None (occurrence: None)
  Receive Date: 20100615
  Receipt Date: 20100608
  Transmission Date: 20101027
  Serious: Yes (Death)
  Sender: FDA-Public Use
  Company Number: US-ELI_LILLY_AND_COMPANY-US201006002740

PATIENT

DRUGS (5)
  1. PEMETREXED [Suspect]
     Indication: SMALL CELL LUNG CANCER STAGE UNSPECIFIED
     Dosage: 500 MG/M2, DAY 1 EVERY 21 DAYS
     Route: 042
  2. CARBOPLATIN [Concomitant]
     Indication: SMALL CELL LUNG CANCER STAGE UNSPECIFIED
     Dosage: UNK, DAY 1 EVERY 21 DAYS
     Route: 042
  3. FOLIC ACID [Concomitant]
     Dosage: 350 UG, DAILY (1/D)
     Route: 048
  4. VITAMIN B-12 [Concomitant]
     Dosage: 1000 UG, EVERY 9 WEEKS
     Route: 030
  5. DEXAMETHASONE [Concomitant]
     Dosage: 4 MG, 2/D, DAY BEFORE, DAY OF, AND DAY AFTER TX EVERY 21 DAYS
     Route: 048

REACTIONS (2)
  - BACTERAEMIA [None]
  - FEBRILE NEUTROPENIA [None]
